FAERS Safety Report 6180120-4 (Version None)
Quarter: 2009Q2

REPORT INFORMATION
  Report Type: 
  Country: None (occurrence: None)
  Receive Date: 20090505
  Receipt Date: 20090423
  Transmission Date: 20091009
  Serious: Yes (Hospitalization)
  Sender: FDA-Public Use
  Company Number: AT-AMGEN-UK344197

PATIENT
  Age: 67 Year
  Sex: Female

DRUGS (1)
  1. NEUPOGEN [Suspect]
     Indication: BONE MARROW TRANSPLANT
     Route: 065

REACTIONS (1)
  - ENTERITIS [None]
